FAERS Safety Report 17146842 (Version 1)
Quarter: 2019Q4

REPORT INFORMATION
  Report Type: Spontaneous
  Country: DE (occurrence: DE)
  Receive Date: 20191212
  Receipt Date: 20191212
  Transmission Date: 20200122
  Serious: Yes (Other)
  Sender: FDA-Public Use
  Company Number: DE-ACCORD-164844

PATIENT
  Age: 80 Year
  Sex: Female
  Weight: 83 kg

DRUGS (3)
  1. RAMIPRIL. [Suspect]
     Active Substance: RAMIPRIL
     Indication: HYPERTENSION
     Dosage: STRENGTH: 5 MG
     Route: 048
  2. CARVEDILOL/CARVEDILOL HYDROCHLODRIDE [Concomitant]
     Active Substance: CARVEDILOL HYDROCHLORIDE
     Indication: HYPERTENSION
     Dosage: STRENGTH: 25 MG
     Route: 048
  3. EBRANTIL [Interacting]
     Active Substance: URAPIDIL
     Indication: HYPERTENSION
     Dosage: 0-0-1 AS NEEDED WHEN THE BLOOD PRESSURE IS HIGH
     Route: 048
     Dates: start: 201911, end: 201911

REACTIONS (2)
  - Arrhythmia [Recovered/Resolved]
  - Drug interaction [Unknown]

NARRATIVE: CASE EVENT DATE: 201911
